FAERS Safety Report 8784480 (Version 1)
Quarter: 2012Q4

REPORT INFORMATION
  Report Type: Spontaneous
  Country: GB (occurrence: None)
  Receive Date: 20120830
  Receipt Date: 20120830
  Transmission Date: 20130627
  Serious: Yes (Other)
  Sender: FDA-Public Use
  Company Number: 2012HINREG0075

PATIENT
  Age: 31 Year
  Sex: Male

DRUGS (3)
  1. LEVETIRACETAM [Suspect]
  2. LAMOTRIGINE [Concomitant]
  3. TOPIRAMATE [Concomitant]

REACTIONS (2)
  - Epilepsy [None]
  - Convulsion [None]
